FAERS Safety Report 5331468-4 (Version None)
Quarter: 2007Q2

REPORT INFORMATION
  Report Type: 
  Country: None (occurrence: None)
  Receive Date: 20070522
  Receipt Date: 20070510
  Transmission Date: 20071010
  Serious: Yes (Other)
  Sender: FDA-Public Use
  Company Number: FR-PFIZER INC-2007039282

PATIENT
  Sex: Female

DRUGS (3)
  1. LYRICA [Suspect]
     Indication: SCIATICA
     Dates: start: 20070101, end: 20070510
  2. TRAMADOL HCL [Concomitant]
     Indication: DIARRHOEA
  3. IMODIUM [Concomitant]
     Indication: DIARRHOEA

REACTIONS (1)
  - TACHYCARDIA PAROXYSMAL [None]
